FAERS Safety Report 9379042 (Version 1)
Quarter: 2013Q3

REPORT INFORMATION
  Report Type: Spontaneous
  Country: US (occurrence: US)
  Receive Date: 20130702
  Receipt Date: 20130702
  Transmission Date: 20140515
  Serious: Yes (Hospitalization)
  Sender: FDA-Public Use
  Company Number: US-ASTRAZENECA-2013SE48697

PATIENT
  Age: 51 Year
  Sex: Male
  Weight: 106.6 kg

DRUGS (17)
  1. SYMBICORT [Suspect]
     Indication: INTERSTITIAL LUNG DISEASE
     Dosage: 320 MCG,  TWO TIMES A DAY
     Route: 055
     Dates: start: 201212
  2. SYMBICORT [Suspect]
     Indication: DYSPNOEA
     Dosage: 320 MCG,  TWO TIMES A DAY
     Route: 055
     Dates: start: 201212
  3. SYMBICORT [Suspect]
     Indication: INTERSTITIAL LUNG DISEASE
     Dosage: EXTRA DOSES, UNKNOWN
     Route: 055
     Dates: start: 201212
  4. SYMBICORT [Suspect]
     Indication: DYSPNOEA
     Dosage: EXTRA DOSES, UNKNOWN
     Route: 055
     Dates: start: 201212
  5. XOPENEX [Suspect]
     Indication: INTERSTITIAL LUNG DISEASE
     Route: 055
  6. XOPENEX [Suspect]
     Indication: INTERSTITIAL LUNG DISEASE
     Dosage: 45 MCG, TWO EXTRA PUFFS
     Route: 055
  7. GUAIFENESIN [Concomitant]
     Indication: PULMONARY CONGESTION
     Route: 048
  8. LEVETIRACETAM [Concomitant]
     Indication: CONVULSION
     Route: 048
  9. PREDNISONE [Concomitant]
     Indication: POLYMYOSITIS
     Route: 048
  10. PREDNISONE [Concomitant]
     Indication: DERMATOMYOSITIS
     Route: 048
  11. RISPERIDONE [Concomitant]
     Indication: ANXIETY
     Route: 048
  12. ALENDRONATE [Concomitant]
     Indication: OSTEOPOROSIS
     Route: 048
  13. PANTOPRAZOLE [Concomitant]
     Indication: BLOOD CHOLESTEROL ABNORMAL
     Route: 048
  14. TRIAMCINOLONE ACETONIDE [Concomitant]
     Indication: DERMATITIS
     Dosage: DAILY
     Route: 061
  15. FLUTICASONE [Concomitant]
     Indication: NASAL CONGESTION
     Route: 045
  16. TESTOSTERONE [Concomitant]
     Indication: SUPPLEMENTATION THERAPY
     Route: 042
  17. SODIUM CHLORIDE [Concomitant]
     Indication: INTERSTITIAL LUNG DISEASE
     Dosage: 9%/5ML PRN
     Route: 055

REACTIONS (13)
  - Sinusitis [Unknown]
  - Lung disorder [Recovered/Resolved]
  - Dermatitis [Unknown]
  - Joint swelling [Not Recovered/Not Resolved]
  - Paraesthesia [Recovered/Resolved]
  - Dyspnoea [Unknown]
  - Weight increased [Unknown]
  - Local swelling [Unknown]
  - Abdominal distension [Unknown]
  - Polymyositis [Unknown]
  - Dermatomyositis [Unknown]
  - Intentional drug misuse [Not Recovered/Not Resolved]
  - Off label use [Unknown]
